FAERS Safety Report 8587455-6 (Version None)
Quarter: 2012Q3

REPORT INFORMATION
  Report Type: 
  Country: None (occurrence: None)
  Receive Date: 20120810
  Receipt Date: 20120123
  Transmission Date: 20120928
  Serious: No
  Sender: FDA-Public Use
  Company Number: US-ASTRAZENECA-2012SE04926

PATIENT
  Age: 68 Year
  Sex: Female

DRUGS (6)
  1. AMLODIPINE BESYLATE [Concomitant]
  2. ANASTROZOLE [Suspect]
     Route: 048
  3. ZESTRIL [Suspect]
     Route: 048
  4. DIAZEPAM [Concomitant]
  5. RANITIDINE [Concomitant]
  6. TOPROL-XL [Concomitant]
     Route: 048

REACTIONS (1)
  - DRUG HYPERSENSITIVITY [None]
